FAERS Safety Report 5089713-9 (Version None)
Quarter: 2006Q3

REPORT INFORMATION
  Report Type: 
  Country: None (occurrence: None)
  Receive Date: 20060823
  Receipt Date: 20060807
  Transmission Date: 20061208
  Serious: Yes (Hospitalization, Other)
  Sender: FDA-Public Use
  Company Number: WAES 0305USA02563

PATIENT
  Age: 72 Year
  Sex: Female

DRUGS (11)
  1. FOSAMAX [Suspect]
     Indication: OSTEOPOROSIS
     Dosage: 70 MG/WKY/PO
     Route: 048
     Dates: start: 20010101, end: 20030109
  2. TAB PLACEBO [Suspect]
     Indication: OSTEOPOROSIS
     Dosage: DAILY/PO
     Route: 048
     Dates: start: 20020919, end: 20030109
  3. TAB ETORICOXIB 90 MG [Suspect]
     Indication: OSTEOPOROSIS
     Dosage: 90 MG/DAILY/PO
     Route: 048
     Dates: start: 20020919, end: 20030109
  4. EVISTA [Concomitant]
  5. LEVOXYL [Concomitant]
  6. VALIUM [Concomitant]
  7. ASPIRIN [Concomitant]
  8. CALCIUM GLUCONATE [Concomitant]
  9. CHONDROITIN (+) GLUCOSAMINE [Concomitant]
  10. IBUPROFEN [Concomitant]
  11. VITAMINS [Concomitant]

REACTIONS (16)
  - ABDOMINAL DISCOMFORT [None]
  - ANAEMIA [None]
  - BLOOD CALCIUM DECREASED [None]
  - BLOOD GLUCOSE INCREASED [None]
  - BLOOD UREA INCREASED [None]
  - DIZZINESS [None]
  - DIZZINESS POSTURAL [None]
  - FATIGUE [None]
  - GASTRIC ULCER [None]
  - GASTRITIS [None]
  - GASTROINTESTINAL HAEMORRHAGE [None]
  - INTERNATIONAL NORMALISED RATIO DECREASED [None]
  - LOSS OF CONSCIOUSNESS [None]
  - OCCULT BLOOD POSITIVE [None]
  - STRESS [None]
  - SYNCOPE [None]
